FAERS Safety Report 8903199 (Version 1)
Quarter: 2012Q4

REPORT INFORMATION
  Report Type: 
  Country: US (occurrence: US)
  Receive Date: 20121113
  Receipt Date: 20121113
  Transmission Date: 20130627
  Serious: No
  Sender: FDA-Public Use
  Company Number: US-BAYER-2012-117564

PATIENT
  Sex: Female

DRUGS (5)
  1. DESONATE GEL [Suspect]
     Indication: PUSTULAR PSORIASIS
  2. CLOBETASOL [Concomitant]
     Indication: PSORIASIS
  3. THORATAIN (SP) [Concomitant]
     Indication: PSORIASIS
  4. DONOVEX [Concomitant]
     Indication: PSORIASIS
  5. CORTICOSTEROID NOS [Concomitant]
     Indication: PSORIASIS

REACTIONS (1)
  - Drug ineffective [None]
